FAERS Safety Report 4718819-6 (Version None)
Quarter: 2005Q3

REPORT INFORMATION
  Report Type: 
  Country: None (occurrence: None)
  Receive Date: 20050719
  Receipt Date: 20050705
  Transmission Date: 20060218
  Serious: Yes (Hospitalization, Other)
  Sender: FDA-Public Use
  Company Number: USA050699827

PATIENT
  Age: 85 Year
  Sex: Female

DRUGS (2)
  1. FORTEO [Suspect]
     Indication: OSTEOPOROSIS
  2. EVISTA [Suspect]
     Indication: OSTEOPOROSIS
     Dates: end: 20040101

REACTIONS (8)
  - CONDITION AGGRAVATED [None]
  - ELECTROLYTE IMBALANCE [None]
  - FALL [None]
  - HOT FLUSH [None]
  - NAUSEA [None]
  - PHARMACEUTICAL PRODUCT COMPLAINT [None]
  - VOMITING [None]
  - WRIST FRACTURE [None]
